FAERS Safety Report 8743376 (Version 2)
Quarter: 2012Q4

REPORT INFORMATION
  Report Type: 
  Country: US (occurrence: US)
  Receive Date: 20120824
  Receipt Date: 20120905
  Transmission Date: 20130627
  Serious: Yes (Death, Hospitalization)
  Sender: FDA-Public Use
  Company Number: US-ACTELION-A-NJ2012-68375

PATIENT
  Age: 67 Year
  Sex: Female

DRUGS (3)
  1. VELETRI [Suspect]
     Indication: PORTOPULMONARY HYPERTENSION
     Dosage: 24 ng/kg, per min
     Route: 041
     Dates: start: 20111121, end: 20120810
  2. LETAIRIS [Concomitant]
  3. SILDENAFIL [Concomitant]

REACTIONS (10)
  - Chronic hepatic failure [Fatal]
  - Renal failure chronic [Fatal]
  - Encephalopathy [Fatal]
  - Portopulmonary hypertension [Fatal]
  - Hepatitis C [Fatal]
  - Hepatic cirrhosis [Fatal]
  - Vomiting [Not Recovered/Not Resolved]
  - Abdominal discomfort [Not Recovered/Not Resolved]
  - Condition aggravated [Not Recovered/Not Resolved]
  - Waist circumference increased [Not Recovered/Not Resolved]
